FAERS Safety Report 19167557 (Version 1)
Quarter: 2021Q2

REPORT INFORMATION
  Report Type: Spontaneous
  Country: US (occurrence: US)
  Receive Date: 20210421
  Receipt Date: 20210421
  Transmission Date: 20210717
  Serious: No
  Sender: FDA-Public Use
  Company Number: None

PATIENT
  Age: 62 Year
  Sex: Female
  Weight: 66.15 kg

DRUGS (4)
  1. LYRICA [Concomitant]
     Active Substance: PREGABALIN
  2. BOTOX [Suspect]
     Active Substance: ONABOTULINUMTOXINA
     Indication: DYSTONIA
     Dosage: ?          OTHER STRENGTH:200 UNITS;?
     Dates: start: 20210126, end: 20210126
  3. ADVIL [Concomitant]
     Active Substance: IBUPROFEN
  4. TUMERIC [Concomitant]
     Active Substance: HERBALS\TURMERIC

REACTIONS (13)
  - Oropharyngeal pain [None]
  - Eyelid ptosis [None]
  - Neuralgia [None]
  - Bedridden [None]
  - Aphonia [None]
  - Urinary retention [None]
  - Gastritis [None]
  - Muscle spasms [None]
  - Drug hypersensitivity [None]
  - Influenza like illness [None]
  - Dyspnoea [None]
  - Asthenia [None]
  - Condition aggravated [None]

NARRATIVE: CASE EVENT DATE: 20210128
